FAERS Safety Report 9684817 (Version 1)
Quarter: 2013Q4

REPORT INFORMATION
  Report Type: Report from Study
  Country: BR (occurrence: BR)
  Receive Date: 20131112
  Receipt Date: 20131112
  Transmission Date: 20140711
  Serious: Yes (Other)
  Sender: FDA-Public Use
  Company Number: PHHY2013BR128770

PATIENT
  Age: 11 Year
  Sex: Male
  Weight: 55 kg

DRUGS (3)
  1. TRILEPTAL / GP 47680 / TRI 476B [Suspect]
     Indication: PETIT MAL EPILEPSY
     Dosage: 5 ML, BID( IN THE MORNING AND IN THE AFTERNOON)
     Route: 048
     Dates: start: 201205, end: 20131110
  2. TRILEPTAL / GP 47680 / TRI 476B [Suspect]
     Dosage: 5 ML, BID (IN THE MORNING AND IN THE AFTERNOON)
     Route: 048
  3. TOFRANIL [Concomitant]
     Indication: ANXIETY
     Dosage: 1 DF, DAILY (AT NIGHT)
     Route: 048
     Dates: start: 201205

REACTIONS (6)
  - Movement disorder [Recovering/Resolving]
  - Hallucination [Recovering/Resolving]
  - Speech disorder [Recovering/Resolving]
  - Petit mal epilepsy [Recovering/Resolving]
  - Insomnia [Recovering/Resolving]
  - Headache [Recovering/Resolving]
